FAERS Safety Report 23187869 (Version 1)
Quarter: 2023Q4

REPORT INFORMATION
  Report Type: Spontaneous
  Country: RU (occurrence: RU)
  Receive Date: 20231115
  Receipt Date: 20231115
  Transmission Date: 20240109
  Serious: Yes (Other)
  Sender: FDA-Public Use
  Company Number: RU-Eisai-EC-2023-152682

PATIENT
  Age: 32 Year
  Sex: Female

DRUGS (2)
  1. HALAVEN [Suspect]
     Active Substance: ERIBULIN MESYLATE
     Indication: Breast cancer
     Dosage: UNKNOWN DOSE AND FREQUENCY
     Route: 042
     Dates: start: 202207
  2. HALAVEN [Suspect]
     Active Substance: ERIBULIN MESYLATE
     Dosage: UNKNOWN DOSE AND FREQUENCY
     Route: 042
     Dates: start: 2022, end: 202210

REACTIONS (2)
  - Hydrothorax [Unknown]
  - Pain [Unknown]

NARRATIVE: CASE EVENT DATE: 20220701
